FAERS Safety Report 7629709-3 (Version None)
Quarter: 2011Q3

REPORT INFORMATION
  Report Type: 
  Country: None (occurrence: None)
  Receive Date: 20110701
  Receipt Date: 20101108
  Transmission Date: 20111222
  Serious: Yes (Hospitalization)
  Sender: FDA-Public Use
  Company Number: 7026580

PATIENT
  Age: 26 Year
  Sex: Male
  Weight: 95 kg

DRUGS (5)
  1. NEURONTIN [Concomitant]
  2. NAPROXEN [Concomitant]
  3. KLONOPIN [Concomitant]
  4. REBIF [Suspect]
     Indication: MULTIPLE SCLEROSIS
     Dosage: 44 MCG, 3 IN 1 WK, SUBCUTANEOUS
     Route: 058
     Dates: start: 20100620
  5. COMPLEX VITAMIN (B-KOMPLEX) [Concomitant]

REACTIONS (4)
  - FATIGUE [None]
  - MULTIPLE SCLEROSIS RELAPSE [None]
  - HEADACHE [None]
  - STRESS [None]
